FAERS Safety Report 5748999-5 (Version None)
Quarter: 2008Q2

REPORT INFORMATION
  Report Type: 
  Country: None (occurrence: None)
  Receive Date: 20080527
  Receipt Date: 20080403
  Transmission Date: 20081010
  Serious: Yes (Hospitalization, Other)
  Sender: FDA-Public Use
  Company Number: US-JNJFOC-20080500173

PATIENT
  Sex: Female
  Weight: 68.04 kg

DRUGS (5)
  1. TYLENOL W/ CODEINE NO. 3 [Suspect]
     Indication: DRUG USE FOR UNKNOWN INDICATION
     Route: 048
  2. TYLENOL [Suspect]
  3. TYLENOL [Suspect]
     Indication: DRUG USE FOR UNKNOWN INDICATION
  4. DOXYCYCLINE [Concomitant]
  5. TUMS [Concomitant]

REACTIONS (3)
  - ABORTION SPONTANEOUS [None]
  - CHORIOAMNIONITIS [None]
  - DRUG EXPOSURE DURING PREGNANCY [None]
